FAERS Safety Report 8376769-0 (Version None)
Quarter: 2012Q2

REPORT INFORMATION
  Report Type: 
  Country: None (occurrence: None)
  Receive Date: 20120522
  Receipt Date: 20120214
  Transmission Date: 20120825
  Serious: Yes (Other)
  Sender: FDA-Public Use
  Company Number: US-BRISTOL-MYERS SQUIBB COMPANY-16399263

PATIENT
  Sex: Female

DRUGS (2)
  1. ONGLYZA [Suspect]
     Dosage: A WEEK
  2. METFORMIN HCL [Suspect]

REACTIONS (2)
  - PANCREATIC ENZYMES INCREASED [None]
  - ABDOMINAL PAIN UPPER [None]
